FAERS Safety Report 22308877 (Version 1)
Quarter: 2023Q2

REPORT INFORMATION
  Report Type: Spontaneous
  Country: US (occurrence: None)
  Receive Date: 20230511
  Receipt Date: 20230511
  Transmission Date: 20230722
  Serious: No
  Sender: FDA-Public Use
  Company Number: US-ROCHE-3284206

PATIENT

DRUGS (1)
  1. OCREVUS [Suspect]
     Active Substance: OCRELIZUMAB
     Indication: Multiple sclerosis
     Dosage: IV INFUSION ;ONGOING: YES
     Route: 042
     Dates: start: 20220720

REACTIONS (2)
  - Product dispensing error [Unknown]
  - No adverse event [Unknown]
